FAERS Safety Report 6697504-8 (Version None)
Quarter: 2010Q2

REPORT INFORMATION
  Report Type: 
  Country: None (occurrence: None)
  Receive Date: 20100422
  Receipt Date: 20100407
  Transmission Date: 20101027
  Serious: Yes (Other)
  Sender: FDA-Public Use
  Company Number: AUR-APL-2010-01101

PATIENT
  Age: 67 Year
  Sex: Female

DRUGS (4)
  1. METFORMIN [Suspect]
     Dosage: 500MG
  2. LIPITOR [Suspect]
  3. HYZAAR [Suspect]
     Dosage: 100/25
  4. LUMIGAN [Suspect]
     Dosage: OPTHALMIC
     Route: 047

REACTIONS (2)
  - CONDITION AGGRAVATED [None]
  - FIBROMYALGIA [None]
